FAERS Safety Report 6746465-1 (Version None)
Quarter: 2010Q2

REPORT INFORMATION
  Report Type: 
  Country: None (occurrence: None)
  Receive Date: 20100528
  Receipt Date: 20100125
  Transmission Date: 20101027
  Serious: No
  Sender: FDA-Public Use
  Company Number: US-ASTRAZENECA-2010SE03842

PATIENT
  Sex: Male

DRUGS (1)
  1. PRILOSEC OTC [Suspect]
     Indication: FLATULENCE
     Route: 048

REACTIONS (3)
  - ERECTILE DYSFUNCTION [None]
  - PENIS DISORDER [None]
  - URINARY RETENTION [None]
